FAERS Safety Report 11283931 (Version 2)
Quarter: 2016Q2

REPORT INFORMATION
  Report Type: Report from Study
  Country: FR (occurrence: FR)
  Receive Date: 20150720
  Receipt Date: 20160615
  Transmission Date: 20160815
  Serious: Yes (Hospitalization)
  Sender: FDA-Public Use
  Company Number: FR-ROCHE-GNE286158

PATIENT
  Age: 4 Year
  Sex: Male
  Weight: 11.71 kg

DRUGS (1)
  1. NUTROPIN AQ [Suspect]
     Active Substance: SOMATROPIN
     Indication: GROWTH HORMONE DEFICIENCY
     Route: 058
     Dates: start: 20070402

REACTIONS (4)
  - Otitis media [Recovered/Resolved]
  - Tonsillar hypertrophy [Recovered/Resolved]
  - Sleep apnoea syndrome [Recovered/Resolved]
  - Conductive deafness [Recovered/Resolved]

NARRATIVE: CASE EVENT DATE: 20090107
